FAERS Safety Report 6354216-8 (Version None)
Quarter: 2009Q3

REPORT INFORMATION
  Report Type: 
  Country: None (occurrence: None)
  Receive Date: 20090914
  Receipt Date: 20090903
  Transmission Date: 20100115
  Serious: Yes (Hospitalization)
  Sender: FDA-Public Use
  Company Number: PHHY2009MX37504

PATIENT
  Sex: Female

DRUGS (1)
  1. STALEVO 100 [Suspect]
     Indication: PARKINSON'S DISEASE

REACTIONS (5)
  - ANOXIA [None]
  - DISCOMFORT [None]
  - DISORIENTATION [None]
  - DIZZINESS [None]
  - HYPERHIDROSIS [None]
